FAERS Safety Report 20650983 (Version 1)
Quarter: 2022Q1

REPORT INFORMATION
  Report Type: Spontaneous
  Country: RO (occurrence: RO)
  Receive Date: 20220329
  Receipt Date: 20220329
  Transmission Date: 20220424
  Serious: Yes (Life-Threatening)
  Sender: FDA-Public Use
  Company Number: None

PATIENT
  Age: 33 Day
  Sex: Female

DRUGS (5)
  1. ALBUMIN HUMAN [Suspect]
     Active Substance: ALBUMIN HUMAN
     Indication: Hypoalbuminaemia
     Route: 041
     Dates: start: 20220304, end: 20220304
  2. Ferrum Hausmann [Concomitant]
     Dosage: 6 GTT DROPS, QD
     Route: 048
  3. ERYTHROPOIETIN [Concomitant]
     Active Substance: ERYTHROPOIETIN
     Dosage: 600 INTERNATIONAL UNIT, QD
     Route: 058
  4. PROTECTIS [Concomitant]
     Dosage: 5 GTT DROPS, QD
     Route: 048
  5. BABY GUARD DHA [Concomitant]
     Dosage: 2 DOSAGE FORM, QD
     Route: 048

REACTIONS (3)
  - Apnoea [Recovered/Resolved]
  - Petechiae [Recovered/Resolved]
  - Pallor [Recovered/Resolved]

NARRATIVE: CASE EVENT DATE: 20220304
